FAERS Safety Report 21440203 (Version 1)
Quarter: 2022Q4

REPORT INFORMATION
  Report Type: Spontaneous
  Country: US (occurrence: US)
  Receive Date: 20221011
  Receipt Date: 20221011
  Transmission Date: 20230112
  Serious: Yes (Hospitalization)
  Sender: FDA-Public Use
  Company Number: US-AMNEAL PHARMACEUTICALS-2021-AMRX-05445

PATIENT
  Age: 39 Year
  Sex: Male
  Weight: 90.703 kg

DRUGS (14)
  1. LIORESAL [Suspect]
     Active Substance: BACLOFEN
     Dosage: 1051 ?G, \DAY
     Route: 037
  2. LIORESAL [Suspect]
     Active Substance: BACLOFEN
     Dosage: 948.8 ?G, \DAY
     Route: 037
  3. MARCAINE [Suspect]
     Active Substance: BUPIVACAINE HYDROCHLORIDE
     Dosage: 5.3 MG, \DAY (ALSO REPORTED AS 5.255 MG/DAY)
     Route: 037
  4. BACLOFEN [Concomitant]
     Active Substance: BACLOFEN
     Dosage: UNK
     Route: 048
  5. BUSPIRONE [Concomitant]
     Active Substance: BUSPIRONE HYDROCHLORIDE
  6. FENTANYL TRANSDERMAL SYSTEM [Concomitant]
     Active Substance: FENTANYL
  7. NEURONTIN [Concomitant]
     Active Substance: GABAPENTIN
     Dosage: 3000 MG, 1X/DAY
  8. IMIPRAMINE [Concomitant]
     Active Substance: IMIPRAMINE
  9. INDOMETHACIN [Concomitant]
     Active Substance: INDOMETHACIN
  10. NITROFURANTOIN MACROCRYSTALS [Concomitant]
     Active Substance: NITROFURANTOIN
  11. PENICILLIN V POTASSIUM [Concomitant]
     Active Substance: PENICILLIN V POTASSIUM
  12. SERTRALINE [Concomitant]
     Active Substance: SERTRALINE HYDROCHLORIDE
  13. TRAMADOL [Concomitant]
     Active Substance: TRAMADOL
     Dosage: 200 MG, 1X/DAY
  14. ZOLPIDEM [Concomitant]
     Active Substance: ZOLPIDEM TARTRATE

REACTIONS (10)
  - Toxicity to various agents [Recovered/Resolved]
  - Dizziness [Recovered/Resolved]
  - Sedation [Recovered/Resolved]
  - Hypotonia [Recovered/Resolved]
  - Seizure [Recovered/Resolved]
  - Mental status changes [None]
  - Hypotension [Recovered/Resolved]
  - Drug withdrawal syndrome [Recovered/Resolved]
  - Dehydration [Recovered/Resolved]
  - Device infusion issue [Recovered/Resolved]

NARRATIVE: CASE EVENT DATE: 20210501
